FAERS Safety Report 24784154 (Version 1)
Quarter: 2024Q4

REPORT INFORMATION
  Report Type: Spontaneous
  Country: US (occurrence: None)
  Receive Date: 20241227
  Receipt Date: 20241227
  Transmission Date: 20250115
  Serious: No
  Sender: Public
  Company Number: None

PATIENT
  Age: 30 Year
  Sex: Male

DRUGS (1)
  1. SKYRIZI [Suspect]
     Active Substance: RISANKIZUMAB-RZAA
     Indication: Psoriasis
     Dosage: 150 MG EVERY 12 WEEKS SUBCUTANEOUS
     Route: 058
     Dates: start: 20241107

REACTIONS (4)
  - Ear pruritus [None]
  - Erythema [None]
  - Feeling hot [None]
  - Ear dryness [None]

NARRATIVE: CASE EVENT DATE: 20241216
